FAERS Safety Report 8542918-4 (Version None)
Quarter: 2012Q3

REPORT INFORMATION
  Report Type: 
  Country: None (occurrence: None)
  Receive Date: 20120716
  Receipt Date: 20120702
  Transmission Date: 20120928
  Serious: Yes (Hospitalization)
  Sender: FDA-Public Use
  Company Number: 2012PL000120

PATIENT
  Age: 55 Year
  Sex: Female
  Weight: 68.0396 kg

DRUGS (3)
  1. LOTRONEX [Suspect]
     Indication: IRRITABLE BOWEL SYNDROME
     Dosage: 0.5 MG;BID;PO
     Route: 048
     Dates: start: 20120531, end: 20120614
  2. CARAFATE [Concomitant]
  3. ACIPHEX [Concomitant]

REACTIONS (1)
  - COLITIS ISCHAEMIC [None]
